FAERS Safety Report 15008538 (Version 3)
Quarter: 2018Q3

REPORT INFORMATION
  Report Type: Report from Study
  Country: US (occurrence: US)
  Receive Date: 20180613
  Receipt Date: 20180717
  Transmission Date: 20181010
  Serious: Yes (Hospitalization)
  Sender: FDA-Public Use
  Company Number: US-ACTELION-A-US2017-153607

PATIENT
  Age: 77 Year
  Sex: Female

DRUGS (14)
  1. OPSUMIT [Suspect]
     Active Substance: MACITENTAN
     Indication: PULMONARY ARTERIAL HYPERTENSION
     Dosage: 10 MG, QD
     Route: 048
     Dates: start: 20161021
  2. OPSUMIT [Suspect]
     Active Substance: MACITENTAN
     Dosage: UNK
     Route: 048
  3. COUMADIN [Concomitant]
     Active Substance: WARFARIN SODIUM
  4. LASIX [Concomitant]
     Active Substance: FUROSEMIDE
  5. CARVEDILOL. [Concomitant]
     Active Substance: CARVEDILOL
  6. IPRATROPIUM [Concomitant]
     Active Substance: IPRATROPIUM
  7. ENALAPRIL [Concomitant]
     Active Substance: ENALAPRIL
  8. ZANTAC [Concomitant]
     Active Substance: RANITIDINE HYDROCHLORIDE
  9. FERROUS SULFATE. [Concomitant]
     Active Substance: FERROUS SULFATE
  10. GABAPENTIN. [Concomitant]
     Active Substance: GABAPENTIN
  11. DIGOXIN. [Concomitant]
     Active Substance: DIGOXIN
  12. MEDROL [Concomitant]
     Active Substance: METHYLPREDNISOLONE
  13. LEVOTHYROXINE. [Concomitant]
     Active Substance: LEVOTHYROXINE
  14. GLIMEPIRIDE. [Concomitant]
     Active Substance: GLIMEPIRIDE

REACTIONS (10)
  - Pain in extremity [Recovering/Resolving]
  - Dyspnoea [Recovering/Resolving]
  - Anticoagulation drug level below therapeutic [Not Recovered/Not Resolved]
  - Fall [Unknown]
  - Head discomfort [Not Recovered/Not Resolved]
  - Pain [Recovering/Resolving]
  - Influenza like illness [Recovered/Resolved]
  - Cough [Not Recovered/Not Resolved]
  - Pyrexia [Recovered/Resolved]
  - Joint injury [Unknown]

NARRATIVE: CASE EVENT DATE: 20170503
